FAERS Safety Report 25063870 (Version 1)
Quarter: 2025Q1

REPORT INFORMATION
  Report Type: Other
  Country: IN (occurrence: IN)
  Receive Date: 20250311
  Receipt Date: 20250311
  Transmission Date: 20250409
  Serious: Yes (Other)
  Sender: Apozeal Pharmaceuticals
  Company Number: IN-Apozeal Pharmaceuticals-2172676

PATIENT
  Age: 56 Year
  Sex: Male

DRUGS (1)
  1. RISPERIDONE [Suspect]
     Active Substance: RISPERIDONE
     Indication: Schizophrenia

REACTIONS (1)
  - Pemphigoid [Recovering/Resolving]
